FAERS Safety Report 4873732-9 (Version None)
Quarter: 2006Q1

REPORT INFORMATION
  Report Type: 
  Country: None (occurrence: None)
  Receive Date: 20060106
  Receipt Date: 20050601
  Transmission Date: 20060701
  Serious: Yes (Other)
  Sender: FDA-Public Use
  Company Number: 2005AP03203

PATIENT
  Age: 22628 Day
  Sex: Female
  Weight: 64 kg

DRUGS (9)
  1. ANAPEINE [Suspect]
     Indication: EPIDURAL ANAESTHESIA
     Route: 008
     Dates: start: 20041006, end: 20041006
  2. ANAPEINE [Suspect]
     Route: 008
     Dates: start: 20041006, end: 20041008
  3. FENTANYL CITRATE [Concomitant]
     Route: 008
     Dates: start: 20041006, end: 20041008
  4. FENTANYL CITRATE [Concomitant]
     Route: 008
     Dates: start: 20041006, end: 20041006
  5. DROLEPTAN [Concomitant]
     Route: 008
     Dates: start: 20041006, end: 20041008
  6. XYLOCAINE [Concomitant]
     Indication: EPIDURAL ANAESTHESIA
     Route: 008
     Dates: start: 20041006, end: 20041006
  7. NITROUS OXIDE W/ OXYGEN [Concomitant]
     Indication: GENERAL ANAESTHESIA
     Route: 055
     Dates: start: 20041006, end: 20041006
  8. DIPRIVAN [Concomitant]
     Indication: GENERAL ANAESTHESIA
     Route: 042
     Dates: start: 20041006, end: 20041006
  9. MUSCULAX [Concomitant]
     Indication: GENERAL ANAESTHESIA
     Route: 042
     Dates: start: 20041006, end: 20041006

REACTIONS (4)
  - BLOOD PRESSURE DECREASED [None]
  - MUSCULAR WEAKNESS [None]
  - NERVE INJURY [None]
  - SPINAL CORD COMPRESSION [None]
